FAERS Safety Report 5778326-9 (Version None)
Quarter: 2008Q2

REPORT INFORMATION
  Report Type: 
  Country: None (occurrence: None)
  Receive Date: 20080601
  Receipt Date: 20080111
  Transmission Date: 20081010
  Serious: No
  Sender: FDA-Public Use
  Company Number: US200801002609

PATIENT
  Age: 52 Year
  Sex: Male
  Weight: 63.5 kg

DRUGS (3)
  1. BYETTA [Suspect]
     Indication: TYPE 2 DIABETES MELLITUS
     Dosage: 10 UG, 2/D, SUBCUTANEOUS
     Route: 058
     Dates: start: 20080101
  2. AVANDIA [Concomitant]
  3. METFORMIN HCL [Concomitant]

REACTIONS (7)
  - ANOREXIA [None]
  - BREATH ODOUR [None]
  - DIZZINESS [None]
  - DRY MOUTH [None]
  - DYSGEUSIA [None]
  - HICCUPS [None]
  - NAUSEA [None]
